FAERS Safety Report 23486870 (Version 4)
Quarter: 2024Q3

REPORT INFORMATION
  Report Type: Spontaneous
  Country: CA (occurrence: CA)
  Receive Date: 20240206
  Receipt Date: 20240909
  Transmission Date: 20241017
  Serious: Yes (Other)
  Sender: PFIZER
  Company Number: CA-PFIZER INC-202400030880

PATIENT
  Age: 70 Year
  Sex: Female

DRUGS (3)
  1. ABRILADA [Suspect]
     Active Substance: ADALIMUMAB-AFZB
     Indication: Crohn^s disease
     Dosage: 160 MG, W0 160MG, W2 80MG, AND THEN 40MG EVERY OTHER WEEK, PREFILLED PEN
     Route: 058
     Dates: start: 20230720, end: 20240808
  2. ABRILADA [Suspect]
     Active Substance: ADALIMUMAB-AFZB
     Indication: Psoriatic arthropathy
  3. METHOTREXATE [Concomitant]
     Active Substance: METHOTREXATE
     Dosage: 1 DF, UNKNOWN DOSE, INJECTIONS
     Route: 065

REACTIONS (14)
  - Intestinal stenosis [Unknown]
  - Back pain [Unknown]
  - Condition aggravated [Not Recovered/Not Resolved]
  - Thrombosis [Unknown]
  - Pericarditis [Unknown]
  - Lyme disease [Unknown]
  - Intervertebral disc protrusion [Not Recovered/Not Resolved]
  - Musculoskeletal pain [Unknown]
  - Pain in extremity [Unknown]
  - Hypertension [Unknown]
  - Head discomfort [Unknown]
  - Fatigue [Unknown]
  - Influenza [Unknown]
  - Mitral valve prolapse [Unknown]

NARRATIVE: CASE EVENT DATE: 20231001
